FAERS Safety Report 6420040-0 (Version None)
Quarter: 2009Q4

REPORT INFORMATION
  Report Type: 
  Country: None (occurrence: None)
  Receive Date: 20091029
  Receipt Date: 20090721
  Transmission Date: 20100525
  Serious: No
  Sender: FDA-Public Use
  Company Number: A0799523A

PATIENT
  Sex: Male

DRUGS (1)
  1. IMITREX [Suspect]

REACTIONS (2)
  - EPISTAXIS [None]
  - INTENTIONAL DRUG MISUSE [None]
